FAERS Safety Report 23720600 (Version 3)
Quarter: 2025Q2

REPORT INFORMATION
  Report Type: Report from Study
  Country: US (occurrence: US)
  Receive Date: 20240408
  Receipt Date: 20250430
  Transmission Date: 20250717
  Serious: Yes (Hospitalization, Other)
  Sender: ABBVIE
  Company Number: US-ABBVIE-5710331

PATIENT
  Age: 43 Year
  Sex: Female

DRUGS (5)
  1. SKYRIZI [Suspect]
     Active Substance: RISANKIZUMAB-RZAA
     Indication: Crohn^s disease
     Dosage: FORM STRENGTH: 360MG/2.4 ML?WEEK 12
     Route: 058
  2. SKYRIZI [Suspect]
     Active Substance: RISANKIZUMAB-RZAA
     Route: 058
  3. SKYRIZI [Suspect]
     Active Substance: RISANKIZUMAB-RZAA
     Indication: Crohn^s disease
     Route: 042
     Dates: start: 202302, end: 202302
  4. SKYRIZI [Suspect]
     Active Substance: RISANKIZUMAB-RZAA
     Indication: Crohn^s disease
     Route: 042
  5. SKYRIZI [Suspect]
     Active Substance: RISANKIZUMAB-RZAA
     Indication: Crohn^s disease
     Route: 042

REACTIONS (13)
  - Scar pain [Unknown]
  - Therapeutic product effect incomplete [Unknown]
  - Frequent bowel movements [Unknown]
  - Diarrhoea [Recovered/Resolved]
  - Abdominal distension [Unknown]
  - Flatulence [Unknown]
  - Abdominal pain [Not Recovered/Not Resolved]
  - Nausea [Unknown]
  - Diarrhoea [Unknown]
  - Faeces soft [Unknown]
  - Fatigue [Unknown]
  - Asthenia [Unknown]
  - Arthralgia [Unknown]

NARRATIVE: CASE EVENT DATE: 20250401
